FAERS Safety Report 5062562-3 (Version None)
Quarter: 2006Q3

REPORT INFORMATION
  Report Type: 
  Country: None (occurrence: None)
  Receive Date: 20060721
  Receipt Date: 20060714
  Transmission Date: 20061208
  Serious: Yes (Other)
  Sender: FDA-Public Use
  Company Number: 2006087708

PATIENT
  Sex: Male

DRUGS (1)
  1. MINOXIDIL [Suspect]
     Dosage: 1 ML BID, TOPICAL
     Route: 061

REACTIONS (3)
  - BLISTER [None]
  - DRUG HYPERSENSITIVITY [None]
  - SWELLING [None]
